FAERS Safety Report 6173997-X (Version None)
Quarter: 2009Q2

REPORT INFORMATION
  Report Type: 
  Country: None (occurrence: None)
  Receive Date: 20090430
  Receipt Date: 20081222
  Transmission Date: 20091009
  Serious: No
  Sender: FDA-Public Use
  Company Number: US-ASTRAZENECA-2005UW15640

PATIENT
  Age: 55 Year
  Sex: Female
  Weight: 54.4 kg

DRUGS (3)
  1. NEXIUM [Suspect]
     Indication: ABDOMINAL PAIN UPPER
     Route: 048
     Dates: start: 20050901
  2. NEXIUM [Suspect]
     Dosage: 40 MG
     Route: 048
     Dates: start: 20070101
  3. HORMON PILL [Concomitant]

REACTIONS (9)
  - ABDOMINAL PAIN UPPER [None]
  - COUGH [None]
  - DIARRHOEA [None]
  - ERUCTATION [None]
  - FAECES PALE [None]
  - FLATULENCE [None]
  - GASTROINTESTINAL PAIN [None]
  - INFLUENZA LIKE ILLNESS [None]
  - PAIN [None]
